FAERS Safety Report 18005045 (Version 3)
Quarter: 2020Q4

REPORT INFORMATION
  Report Type: Spontaneous
  Country: US (occurrence: US)
  Receive Date: 20200709
  Receipt Date: 20201218
  Transmission Date: 20210113
  Serious: Yes (Death, Other)
  Sender: FDA-Public Use
  Company Number: US-NAPPMUNDI-USA-2020-0157041

PATIENT
  Sex: Male

DRUGS (3)
  1. GABAPENTIN. [Concomitant]
     Active Substance: GABAPENTIN
     Indication: PHANTOM LIMB SYNDROME
     Dosage: UNK
     Route: 048
     Dates: start: 20070706, end: 20081111
  2. HYDROCODONE BITARTRATE (SIMILAR TO NDA 206627) [Suspect]
     Active Substance: HYDROCODONE BITARTRATE
     Indication: PAIN
     Dosage: UNK
     Route: 048
     Dates: start: 20070606, end: 20081111
  3. OXYCONTIN [Suspect]
     Active Substance: OXYCODONE HYDROCHLORIDE
     Indication: PAIN
     Dosage: 2/3X DAY
     Route: 048
     Dates: start: 20070606, end: 20081111

REACTIONS (4)
  - Cerebral disorder [Fatal]
  - Phantom limb syndrome [Unknown]
  - Toxicity to various agents [Fatal]
  - Dependence [Unknown]

NARRATIVE: CASE EVENT DATE: 20081111
